FAERS Safety Report 6138391-6 (Version None)
Quarter: 2009Q1

REPORT INFORMATION
  Report Type: 
  Country: None (occurrence: None)
  Receive Date: 20090327
  Receipt Date: 20090327
  Transmission Date: 20090719
  Serious: No
  Sender: FDA-Public Use
  Company Number: None

PATIENT
  Age: 32 Year
  Sex: Female
  Weight: 97.5234 kg

DRUGS (2)
  1. ICY HOT CREME  CHATTEM,INC. [Suspect]
     Indication: MYALGIA
     Dosage: SIZE IF A QUARTER EA TIME APPL  3X DAILY OTHER
     Route: 050
  2. ASPERCREME  CHATTEM, INC. [Suspect]
     Indication: MYALGIA
     Dosage: 3X DAILY OTHER
     Route: 050

REACTIONS (8)
  - BLISTER [None]
  - CONDITION AGGRAVATED [None]
  - DISCOMFORT [None]
  - FEELING HOT [None]
  - MYALGIA [None]
  - PAIN OF SKIN [None]
  - SKIN IRRITATION [None]
  - SLEEP DISORDER [None]
